FAERS Safety Report 11292405 (Version 1)
Quarter: 2015Q3

REPORT INFORMATION
  Report Type: Spontaneous
  Country: US (occurrence: None)
  Receive Date: 20150721
  Receipt Date: 20150721
  Transmission Date: 20151125
  Serious: No
  Sender: FDA-Public Use
  Company Number: None

PATIENT
  Age: 40 Year
  Sex: Female
  Weight: 115.21 kg

DRUGS (23)
  1. LAMICTAL [Concomitant]
     Active Substance: LAMOTRIGINE
  2. PRAVASTATIN [Concomitant]
     Active Substance: PRAVASTATIN\PRAVASTATIN SODIUM
  3. TOPAMAX [Concomitant]
     Active Substance: TOPIRAMATE
  4. CINNAMON. [Concomitant]
     Active Substance: CINNAMON
  5. JOINT PROMOTION [Concomitant]
  6. PANTOPRAZOLE [Concomitant]
     Active Substance: PANTOPRAZOLE SODIUM
  7. ABILIFY [Concomitant]
     Active Substance: ARIPIPRAZOLE
  8. TRAMADOL. [Concomitant]
     Active Substance: TRAMADOL
  9. MELOXICAM. [Concomitant]
     Active Substance: MELOXICAM
  10. XANAX [Concomitant]
     Active Substance: ALPRAZOLAM
  11. BACLOFEN. [Concomitant]
     Active Substance: BACLOFEN
  12. GABAPENTIN. [Concomitant]
     Active Substance: GABAPENTIN
  13. METFORMIN [Concomitant]
     Active Substance: METFORMIN HYDROCHLORIDE
  14. SINGULAIR [Concomitant]
     Active Substance: MONTELUKAST SODIUM
  15. ADDERALL [Concomitant]
     Active Substance: AMPHETAMINE ASPARTATE\AMPHETAMINE SULFATE\DEXTROAMPHETAMINE SACCHARATE\DEXTROAMPHETAMINE SULFATE
  16. VITAMIN E [Concomitant]
     Active Substance: .ALPHA.-TOCOPHEROL
  17. VICTOZA [Suspect]
     Active Substance: LIRAGLUTIDE
     Indication: OBESITY
     Dosage: GIVEN INTO/UNDER THE SKIN
     Dates: start: 20150707, end: 20150715
  18. GASTRIC STIMULATOR [Concomitant]
  19. LOSARTAN. [Concomitant]
     Active Substance: LOSARTAN
  20. VICTOZA [Suspect]
     Active Substance: LIRAGLUTIDE
     Indication: DIABETES MELLITUS
     Dosage: GIVEN INTO/UNDER THE SKIN
     Dates: start: 20150707, end: 20150715
  21. CYMBALTA [Concomitant]
     Active Substance: DULOXETINE HYDROCHLORIDE
  22. VYVANSE [Concomitant]
     Active Substance: LISDEXAMFETAMINE DIMESYLATE
  23. INVOKANA [Concomitant]
     Active Substance: CANAGLIFLOZIN

REACTIONS (9)
  - Eructation [None]
  - Nausea [None]
  - Diarrhoea [None]
  - Somnolence [None]
  - Vomiting [None]
  - Discomfort [None]
  - Mental impairment [None]
  - Feeling abnormal [None]
  - Nightmare [None]

NARRATIVE: CASE EVENT DATE: 20150712
